FAERS Safety Report 21667775 (Version 11)
Quarter: 2023Q4

REPORT INFORMATION
  Report Type: Spontaneous
  Country: US (occurrence: US)
  Receive Date: 20221201
  Receipt Date: 20231204
  Transmission Date: 20240110
  Serious: Yes (Hospitalization, Other)
  Sender: FDA-Public Use
  Company Number: US-PFIZER INC-PV202200114112

PATIENT
  Age: 94 Year
  Sex: Male

DRUGS (5)
  1. CIBINQO [Suspect]
     Active Substance: ABROCITINIB
     Indication: Dermatitis atopic
     Dosage: 100 MG
     Route: 048
  2. CIBINQO [Suspect]
     Active Substance: ABROCITINIB
     Indication: Lichen planus
     Dosage: 100 MG, DAILY
     Route: 048
     Dates: start: 202310
  3. CIBINQO [Suspect]
     Active Substance: ABROCITINIB
     Indication: Stasis dermatitis
  4. CIBINQO [Suspect]
     Active Substance: ABROCITINIB
     Indication: Xerosis
  5. CIBINQO [Suspect]
     Active Substance: ABROCITINIB
     Indication: Seborrhoeic keratosis

REACTIONS (8)
  - Cardiac failure congestive [Unknown]
  - Pericardial effusion [Unknown]
  - Illness [Unknown]
  - Skin lesion [Unknown]
  - Urinary tract infection [Not Recovered/Not Resolved]
  - Hypoacusis [Unknown]
  - Frustration tolerance decreased [Unknown]
  - Pruritus [Recovering/Resolving]

NARRATIVE: CASE EVENT DATE: 20231106
